FAERS Safety Report 9007944 (Version 2)
Quarter: 2013Q1

REPORT INFORMATION
  Report Type: Report from Study
  Country: CA (occurrence: CA)
  Receive Date: 20130111
  Receipt Date: 20130123
  Transmission Date: 20140127
  Serious: Yes (Other)
  Sender: FDA-Public Use
  Company Number: CA-JNJFOC-20130102790

PATIENT
  Age: 40 Year
  Sex: Male
  Weight: 90 kg

DRUGS (1)
  1. REMICADE [Suspect]
     Indication: ANKYLOSING SPONDYLITIS
     Route: 042
     Dates: start: 20050819

REACTIONS (4)
  - Iritis [Not Recovered/Not Resolved]
  - Sinusitis [Recovered/Resolved]
  - Oropharyngeal pain [Recovered/Resolved]
  - Cough [Unknown]
